FAERS Safety Report 14545939 (Version 3)
Quarter: 2018Q1

REPORT INFORMATION
  Report Type: Report from Study
  Country: None (occurrence: TR)
  Receive Date: 20180219
  Receipt Date: 20180322
  Transmission Date: 20180509
  Serious: Yes (Other)
  Sender: FDA-Public Use
  Company Number: TR-ABBVIE-18K-161-2258469-00

PATIENT
  Age: 60 Year
  Sex: Male
  Weight: 65 kg

DRUGS (14)
  1. REMERON [Concomitant]
     Active Substance: MIRTAZAPINE
     Indication: PARKINSON^S DISEASE
     Route: 048
  2. PEXOLA [Concomitant]
     Active Substance: PRAMIPEXOLE DIHYDROCHLORIDE
     Indication: PARKINSON^S DISEASE
     Route: 048
  3. PERGE [Concomitant]
     Indication: PARKINSON^S DISEASE
     Route: 048
  4. PERGE [Concomitant]
     Route: 048
  5. MADOPAR HBS [Concomitant]
     Active Substance: BENSERAZIDE HYDROCHLORIDE\LEVODOPA
     Dosage: 1X2
     Route: 048
  6. STALEVO [Concomitant]
     Active Substance: CARBIDOPA\ENTACAPONE\LEVODOPA
     Indication: PARKINSON^S DISEASE
     Route: 048
  7. EUTHYROX [Concomitant]
     Active Substance: LEVOTHYROXINE SODIUM
     Indication: GOITRE
     Route: 048
     Dates: start: 2012
  8. EFFEXOR XR [Concomitant]
     Active Substance: VENLAFAXINE HYDROCHLORIDE
     Indication: PARKINSON^S DISEASE
     Route: 048
  9. PANTO [Concomitant]
     Active Substance: PANTOPRAZOLE SODIUM
     Indication: PROPHYLAXIS
     Route: 048
  10. PEXOLA [Concomitant]
     Active Substance: PRAMIPEXOLE DIHYDROCHLORIDE
     Route: 048
  11. EFFEXOR XR [Concomitant]
     Active Substance: VENLAFAXINE HYDROCHLORIDE
     Route: 048
  12. DUODOPA [Suspect]
     Active Substance: CARBIDOPA\LEVODOPA
     Indication: PARKINSON^S DISEASE
     Dosage: MOR DOSE: 5.ML, CONTINUOUS DOSE:  2.5ML UNTILL NOON, 2.9ML AFTER NOON, EXTRA DOSE: 2.ML
     Route: 050
     Dates: start: 20171115
  13. MADOPAR HBS [Concomitant]
     Active Substance: BENSERAZIDE HYDROCHLORIDE\LEVODOPA
     Indication: PARKINSON^S DISEASE
     Route: 048
  14. MOTILIUM [Concomitant]
     Active Substance: DOMPERIDONE
     Indication: PARKINSON^S DISEASE
     Route: 048

REACTIONS (5)
  - Sleep disorder [Recovering/Resolving]
  - Lymphadenopathy [Unknown]
  - Pain [Recovering/Resolving]
  - Stoma site induration [Not Recovered/Not Resolved]
  - Stoma site pain [Recovering/Resolving]

NARRATIVE: CASE EVENT DATE: 201801
